FAERS Safety Report 23074721 (Version 2)
Quarter: 2023Q4

REPORT INFORMATION
  Report Type: Spontaneous
  Country: JP (occurrence: JP)
  Receive Date: 20231017
  Receipt Date: 20231117
  Transmission Date: 20240110
  Serious: Yes (Hospitalization)
  Sender: FDA-Public Use
  Company Number: JP-TEVA-2023-JP-2936075

PATIENT
  Age: 7 Decade
  Sex: Male

DRUGS (3)
  1. DIAZEPAM [Suspect]
     Active Substance: DIAZEPAM
     Indication: Seizure
     Route: 042
  2. POLYETHYLENE GLYCOL 3350\POTASSIUM CHLORIDE\SODIUM BICARBONATE\SODIUM [Suspect]
     Active Substance: POLYETHYLENE GLYCOL 3350\POTASSIUM CHLORIDE\SODIUM BICARBONATE\SODIUM CHLORIDE\SODIUM SULFATE
     Indication: Laxative supportive care
     Dosage: MOBEN-CONTAINING SOLUTION; MOPEN 500ML DILUTED WITH WATER TO MAKE A 4-FOLD DILUTION OF APPROXIMAT...
     Route: 048
  3. HALOPERIDOL [Suspect]
     Active Substance: HALOPERIDOL
     Indication: Seizure
     Route: 042

REACTIONS (2)
  - Hyponatraemia [Recovering/Resolving]
  - Drug ineffective [Unknown]
